FAERS Safety Report 11862115 (Version 1)
Quarter: 2015Q4

REPORT INFORMATION
  Report Type: Spontaneous
  Country: JP (occurrence: JP)
  Receive Date: 20151222
  Receipt Date: 20151222
  Transmission Date: 20160305
  Serious: Yes (Hospitalization)
  Sender: FDA-Public Use
  Company Number: JP-009507513-1512JPN010798

PATIENT
  Sex: Female

DRUGS (3)
  1. FOSAMAC TABLETS 35MG [Suspect]
     Active Substance: ALENDRONATE SODIUM
     Dosage: DAILY DOSE UNKNOWN
     Route: 048
     Dates: start: 201511
  2. ADRENAL [Concomitant]
     Active Substance: EPINEPHRINE
     Dosage: DAILY DOSE UNKNOWN
     Route: 048
  3. FOSAMAC TABLETS 35MG [Suspect]
     Active Substance: ALENDRONATE SODIUM
     Dosage: DAILY DOSE UNKNOWN
     Route: 048

REACTIONS (2)
  - Pain in extremity [Unknown]
  - Neuralgia [Unknown]

NARRATIVE: CASE EVENT DATE: 20151217
